FAERS Safety Report 24201727 (Version 1)
Quarter: 2024Q3

REPORT INFORMATION
  Report Type: Spontaneous
  Country: DE (occurrence: DE)
  Receive Date: 20240812
  Receipt Date: 20240812
  Transmission Date: 20241017
  Serious: Yes (Other)
  Sender: TEVA
  Company Number: None

PATIENT
  Age: 51 Year
  Sex: Male
  Weight: 86 kg

DRUGS (1)
  1. CIPROFLOXACIN [Suspect]
     Active Substance: CIPROFLOXACIN
     Indication: Prostatic pain
     Dosage: 1ST DOSE: 10 TABLETS ON 5 DAYS; NO EFFECT/IMPROVEMENT, THEREFORE 2ND DOSE: 20 TABLETS ON 20 DAYS
     Route: 048
     Dates: start: 20230530, end: 20230711

REACTIONS (7)
  - Neuropathy peripheral [Unknown]
  - Tendon discomfort [Recovered/Resolved]
  - Headache [Recovered/Resolved]
  - Myalgia [Recovered/Resolved]
  - Hypoaesthesia [Recovered/Resolved]
  - Paraesthesia [Recovered/Resolved]
  - Tendon pain [Recovering/Resolving]

NARRATIVE: CASE EVENT DATE: 20230709
